FAERS Safety Report 14847502 (Version 1)
Quarter: 2018Q2

REPORT INFORMATION
  Report Type: Spontaneous
  Country: US (occurrence: US)
  Receive Date: 20180504
  Receipt Date: 20180504
  Transmission Date: 20180711
  Serious: Yes (Other)
  Sender: FDA-Public Use
  Company Number: US-SA-2018SA115836

PATIENT
  Age: 51 Year
  Sex: Male

DRUGS (4)
  1. DIPHENHYDRAMINE. [Concomitant]
     Active Substance: DIPHENHYDRAMINE
     Indication: PROPHYLAXIS
     Route: 065
  2. CEFAZOLIN [Concomitant]
     Active Substance: CEFAZOLIN
     Indication: PROPHYLAXIS
     Route: 065
  3. THYMOGLOBULINE [Suspect]
     Active Substance: LAPINE T-LYMPHOCYTE IMMUNE GLOBULIN
     Indication: RENAL TRANSPLANT
     Route: 041
  4. METHYLPREDNISOLONE. [Concomitant]
     Active Substance: METHYLPREDNISOLONE
     Indication: PROPHYLAXIS
     Route: 065

REACTIONS (11)
  - Carbon dioxide decreased [Unknown]
  - Tachycardia [Not Recovered/Not Resolved]
  - Lip swelling [Unknown]
  - Mouth swelling [Unknown]
  - Hypotension [Not Recovered/Not Resolved]
  - Swelling [Unknown]
  - Cardiac arrest [Unknown]
  - Anaphylactic shock [Unknown]
  - Swollen tongue [Unknown]
  - Swelling face [Unknown]
  - Tryptase increased [Unknown]
